FAERS Safety Report 8202791-0 (Version None)
Quarter: 2012Q1

REPORT INFORMATION
  Report Type: 
  Country: None (occurrence: None)
  Receive Date: 20120312
  Receipt Date: 20120312
  Transmission Date: 20120608
  Serious: Yes (Other)
  Sender: FDA-Public Use
  Company Number: None

PATIENT
  Age: 68 Year
  Sex: Female
  Weight: 83 kg

DRUGS (5)
  1. METFORMIN HCL [Concomitant]
  2. LIPITOR [Concomitant]
     Dosage: 5MG
     Route: 048
  3. LIPITOR [Suspect]
     Indication: BLOOD CHOLESTEROL INCREASED
     Dosage: 5MG
     Route: 048
  4. LOSARTIN POTASSIUM [Concomitant]
  5. ASPIRIN [Concomitant]

REACTIONS (1)
  - PULMONARY FIBROSIS [None]
